FAERS Safety Report 8015796-X (Version None)
Quarter: 2011Q4

REPORT INFORMATION
  Report Type: 
  Country: None (occurrence: None)
  Receive Date: 20111230
  Receipt Date: 20111219
  Transmission Date: 20120403
  Serious: Yes (Other)
  Sender: FDA-Public Use
  Company Number: GB-MYLANLABS-2011S1025891

PATIENT
  Age: 49 Year
  Weight: 60 kg

DRUGS (6)
  1. FLUOXETINE [Interacting]
     Indication: DEPRESSION
     Dates: start: 20110901
  2. TOLTERODINE TARTRATE [Interacting]
     Indication: BLADDER IRRITATION
     Route: 048
     Dates: start: 20111018, end: 20111019
  3. FLUOXETINE [Suspect]
     Indication: ANXIETY
     Dates: start: 20110901
  4. TOLTERODINE TARTRATE [Concomitant]
     Indication: PRODUCT USED FOR UNKNOWN INDICATION
     Dates: start: 20110501
  5. CLARITHROMYCIN [Interacting]
     Indication: LOWER RESPIRATORY TRACT INFECTION
  6. TOLTERODINE TARTRATE [Interacting]
     Indication: POLLAKIURIA
     Route: 048
     Dates: start: 20111018, end: 20111019

REACTIONS (4)
  - POLLAKIURIA [None]
  - ROAD TRAFFIC ACCIDENT [None]
  - DRUG INTERACTION [None]
  - EPILEPSY [None]
